FAERS Safety Report 15636917 (Version 3)
Quarter: 2018Q4

REPORT INFORMATION
  Report Type: Spontaneous
  Country: US (occurrence: US)
  Receive Date: 20181120
  Receipt Date: 20181127
  Transmission Date: 20190205
  Serious: Yes (Other)
  Sender: FDA-Public Use
  Company Number: US-SA-2018SA314916

PATIENT
  Age: 54 Year
  Sex: Male

DRUGS (1)
  1. AUBAGIO [Suspect]
     Active Substance: TERIFLUNOMIDE
     Dosage: UNK
     Dates: start: 20171110, end: 20181111

REACTIONS (4)
  - Hepatic enzyme increased [Unknown]
  - Liver disorder [Unknown]
  - Alopecia [Unknown]
  - Renal impairment [Unknown]

NARRATIVE: CASE EVENT DATE: 20181112
